FAERS Safety Report 6489618-2 (Version None)
Quarter: 2009Q4

REPORT INFORMATION
  Report Type: 
  Country: None (occurrence: None)
  Receive Date: 20091210
  Receipt Date: 20091203
  Transmission Date: 20100525
  Serious: Yes (Death, Other)
  Sender: FDA-Public Use
  Company Number: JP-NOVOPROD-301690

PATIENT
  Age: 50 Year
  Sex: Male
  Weight: 60 kg

DRUGS (2)
  1. NOVOSEVEN [Suspect]
     Indication: HAEMOSTASIS
     Dosage: EVERY 3 HOURS
     Route: 042
     Dates: start: 20091023, end: 20091130
  2. NOVOSEVEN [Suspect]
     Dosage: EVERY 6 HOURS
     Route: 042
     Dates: start: 20091130

REACTIONS (4)
  - CARDIO-RESPIRATORY ARREST [None]
  - HAEMOBILIA [None]
  - HEPATIC HAEMORRHAGE [None]
  - SHOCK HAEMORRHAGIC [None]
